FAERS Safety Report 10410823 (Version 1)
Quarter: 2014Q3

REPORT INFORMATION
  Report Type: Spontaneous
  Country: US (occurrence: US)
  Receive Date: 20140826
  Receipt Date: 20140826
  Transmission Date: 20150326
  Serious: Yes (Other)
  Sender: FDA-Public Use
  Company Number: US-BRISTOL-MYERS SQUIBB COMPANY-19356583

PATIENT
  Age: 54 Year
  Sex: Male
  Weight: 90.7 kg

DRUGS (3)
  1. VYTORIN 10/20 [Concomitant]
  2. KENALOG [Suspect]
     Active Substance: TRIAMCINOLONE ACETONIDE
     Indication: MACULAR CYST
     Dosage: IN HIS RIGHT EYE
     Dates: start: 20130802
  3. ASPIRIN. [Concomitant]
     Active Substance: ASPIRIN

REACTIONS (1)
  - Anaphylactic reaction [Unknown]

NARRATIVE: CASE EVENT DATE: 20130802
